FAERS Safety Report 5126186-1 (Version None)
Quarter: 2006Q3

REPORT INFORMATION
  Report Type: 
  Country: None (occurrence: None)
  Receive Date: 20060825
  Receipt Date: 20051026
  Transmission Date: 20061208
  Serious: Yes (Other)
  Sender: FDA-Public Use
  Company Number: HQWYE337401NOV05

PATIENT
  Age: 8 Year
  Sex: Male
  Weight: 31.78 kg

DRUGS (3)
  1. ADVIL [Suspect]
     Indication: PHARYNGOLARYNGEAL PAIN
     Dosage: 2 TSP 1X PER 1 DAY, ORAL
     Route: 048
     Dates: start: 20051024, end: 20051024
  2. FLUORIDE (FLUORIDE) [Concomitant]
  3. AMOXICILLIN [Concomitant]

REACTIONS (4)
  - FEELING DRUNK [None]
  - HYPERSENSITIVITY [None]
  - PSYCHOMOTOR HYPERACTIVITY [None]
  - SOMNOLENCE [None]
